FAERS Safety Report 9366820 (Version 1)
Quarter: 2013Q2

REPORT INFORMATION
  Report Type: Spontaneous
  Country: FR (occurrence: FR)
  Receive Date: 20130625
  Receipt Date: 20130625
  Transmission Date: 20140414
  Serious: Yes (Hospitalization)
  Sender: FDA-Public Use
  Company Number: FR-TEVA-415029ISR

PATIENT
  Age: 84 Year
  Sex: Male

DRUGS (8)
  1. FUROSEMIDE TEVA 40 MG, SCORED TABLET [Suspect]
     Indication: OEDEMA
     Dosage: 1.5 TABLET DAILY; 1.5 TABLET PER DAY, IN NOON
     Route: 048
  2. COUMADINE 5MG [Concomitant]
  3. DIFFU K NOS [Concomitant]
  4. UNSPECIFIED RAMIPRIL 10 [Concomitant]
  5. DIAMICRON 60 MG [Concomitant]
  6. UNSPECIFIED ALLOPURINOL 200 [Concomitant]
  7. DOLIPRANE NOS [Concomitant]
  8. LASILIX RETARD 60 MG NOT TEVA [Concomitant]

REACTIONS (3)
  - Cardiac failure [Unknown]
  - Sleep disorder [Unknown]
  - Hospitalisation [Unknown]
